FAERS Safety Report 4897340-9 (Version None)
Quarter: 2005Q4

REPORT INFORMATION
  Report Type: 
  Country: None (occurrence: None)
  Receive Date: 20051223
  Receipt Date: 20051014
  Transmission Date: 20060501
  Serious: No
  Sender: FDA-Public Use
  Company Number: 05P-163-0314002-00

PATIENT
  Age: 66 Year
  Sex: Female
  Weight: 67.586 kg

DRUGS (18)
  1. HUMIRA [Suspect]
     Indication: RHEUMATOID ARTHRITIS
     Dosage: 40 MG, 1 IN 2 WK, SUBCUTANEOUS
     Route: 058
     Dates: start: 20050201
  2. METHTOREXATE [Concomitant]
  3. CELECOXIB [Concomitant]
  4. FOLIC ACID [Concomitant]
  5. VENLAFAXINE HCL [Concomitant]
  6. ATORVASTATIN CALCIUM [Concomitant]
  7. METOPROLOL SUCCINATE [Concomitant]
  8. LEVOTHYROXINE SODIUM [Concomitant]
  9. VICODIN [Concomitant]
  10. HYZAAR [Concomitant]
  11. LANSOPRAZOLE [Concomitant]
  12. ZETIA [Concomitant]
  13. TIZANIDINE HCL [Concomitant]
  14. ACETYLSALICYLIC ACID SRT [Concomitant]
  15. ACTOS [Concomitant]
  16. ALENDRONATE SODIUM [Concomitant]
  17. NITROGLYCERIN [Concomitant]
  18. MULTIVITAMIN [Concomitant]

REACTIONS (1)
  - NASOPHARYNGITIS [None]
